FAERS Safety Report 24118206 (Version 3)
Quarter: 2024Q3

REPORT INFORMATION
  Report Type: Spontaneous
  Country: JP (occurrence: JP)
  Receive Date: 20240722
  Receipt Date: 20240913
  Transmission Date: 20241016
  Serious: Yes (Other)
  Sender: UPSHER SMITH LABORATORIES
  Company Number: JP-UPSHER-SMITH LABORATORIES, LLC-20240700018

PATIENT
  Age: 63 Year
  Sex: Female
  Weight: 36.7 kg

DRUGS (6)
  1. AMANTADINE HYDROCHLORIDE [Suspect]
     Active Substance: AMANTADINE HYDROCHLORIDE
     Indication: Product used for unknown indication
     Dosage: 200 MG, DAILY
     Route: 065
  2. AMANTADINE HYDROCHLORIDE [Suspect]
     Active Substance: AMANTADINE HYDROCHLORIDE
     Dosage: 100 MG, DAILY (ON DAY 95)
     Route: 065
  3. AMPICILLIN SODIUM\SULBACTAM SODIUM [Concomitant]
     Active Substance: AMPICILLIN SODIUM\SULBACTAM SODIUM
     Indication: Pneumonia aspiration
     Dosage: UNK
     Route: 042
  4. BENSERAZIDE HYDROCHLORIDE\LEVODOPA [Concomitant]
     Active Substance: BENSERAZIDE HYDROCHLORIDE\LEVODOPA
     Indication: Parkinson^s disease
     Dosage: UNK UNK, DAILY (500/125 MG)
     Route: 065
  5. ROPINIROLE [Concomitant]
     Active Substance: ROPINIROLE
     Indication: Parkinson^s disease
     Dosage: 16 MG, DAILY
     Route: 065
  6. OPICAPONE [Concomitant]
     Active Substance: OPICAPONE
     Indication: Parkinson^s disease
     Dosage: 25 MG, DAILY
     Route: 065

REACTIONS (3)
  - Depressed level of consciousness [Recovered/Resolved]
  - Toxicity to various agents [Unknown]
  - Dyskinesia [Recovered/Resolved]
